FAERS Safety Report 10588015 (Version 1)
Quarter: 2014Q4

REPORT INFORMATION
  Report Type: Spontaneous
  Country: GB (occurrence: GB)
  Receive Date: 20141117
  Receipt Date: 20141117
  Transmission Date: 20150529
  Serious: Yes (Life-Threatening)
  Sender: FDA-Public Use
  Company Number: GB-BRISTOL-MYERS SQUIBB COMPANY-21578497

PATIENT
  Age: 69 Year
  Sex: Female

DRUGS (8)
  1. AMLODIPINE [Concomitant]
     Active Substance: AMLODIPINE BESYLATE
  2. BUMETANIDE. [Concomitant]
     Active Substance: BUMETANIDE
  3. DOXAZOSIN [Concomitant]
     Active Substance: DOXAZOSIN\DOXAZOSIN MESYLATE
  4. GLICLAZIDE [Concomitant]
     Active Substance: GLICLAZIDE
  5. LISINOPRIL. [Concomitant]
     Active Substance: LISINOPRIL
  6. EXENATIDE [Suspect]
     Active Substance: EXENATIDE
     Indication: WEIGHT DECREASED
     Route: 058
     Dates: start: 20120730, end: 20141027
  7. GLUCOPHAGE [Concomitant]
     Active Substance: METFORMIN HYDROCHLORIDE
  8. PRAVASTATIN SODIUM. [Concomitant]
     Active Substance: PRAVASTATIN SODIUM

REACTIONS (3)
  - Pancreatic carcinoma metastatic [Not Recovered/Not Resolved]
  - Metastases to liver [Not Recovered/Not Resolved]
  - Off label use [Unknown]

NARRATIVE: CASE EVENT DATE: 20141027
